FAERS Safety Report 10137486 (Version 1)
Quarter: 2014Q2

REPORT INFORMATION
  Report Type: Spontaneous
  Country: KR (occurrence: KR)
  Receive Date: 20140429
  Receipt Date: 20140429
  Transmission Date: 20141212
  Serious: Yes (Other)
  Sender: FDA-Public Use
  Company Number: KR-SA-2014SA052435

PATIENT
  Sex: Male

DRUGS (1)
  1. LASIX [Suspect]
     Indication: OEDEMA PERIPHERAL
     Route: 048
     Dates: start: 2013, end: 201404

REACTIONS (2)
  - Spastic paralysis [Recovering/Resolving]
  - Muscle spasticity [Recovering/Resolving]
